FAERS Safety Report 8756624 (Version 2)
Quarter: 2012Q4

REPORT INFORMATION
  Report Type: 
  Country: US (occurrence: US)
  Receive Date: 20120828
  Receipt Date: 20121217
  Transmission Date: 20130627
  Serious: Yes (Hospitalization)
  Sender: FDA-Public Use
  Company Number: US-BAYER-2012-087324

PATIENT
  Age: 29 Year
  Sex: Female
  Weight: 77 kg

DRUGS (5)
  1. YAZ [Suspect]
     Dosage: UNK
     Dates: start: 2005, end: 2008
  2. EFFEXOR [Concomitant]
     Indication: DEPRESSION
     Dosage: UNK
     Dates: start: 2006, end: 2011
  3. PAXIL [Concomitant]
     Indication: ANXIETY
     Dosage: UNK
     Dates: start: 2006, end: 2011
  4. MULTI-VITAMIN [Concomitant]
  5. CALCIUM [Concomitant]

REACTIONS (6)
  - Gallbladder disorder [None]
  - Injury [None]
  - Pain [None]
  - Emotional distress [None]
  - Anxiety [None]
  - Psychological trauma [None]
